FAERS Safety Report 9277062 (Version 3)
Quarter: 2013Q2

REPORT INFORMATION
  Report Type: Spontaneous
  Country: JP (occurrence: JP)
  Receive Date: 20130507
  Receipt Date: 20130611
  Transmission Date: 20140414
  Serious: Yes (Hospitalization)
  Sender: FDA-Public Use
  Company Number: JP-009507513-1304JPN017591

PATIENT
  Age: 72 Year
  Sex: Female
  Weight: 57 kg

DRUGS (16)
  1. PEGINTRON [Suspect]
     Indication: CHRONIC HEPATITIS C
     Dosage: 1.05 MICROGRAM PER KILOGRAM, QW
     Route: 058
     Dates: start: 20130130, end: 20130130
  2. PEGINTRON [Suspect]
     Dosage: 1.23 MICROGRAM PER KILOGRAM, QW
     Route: 058
     Dates: start: 20130206, end: 20130206
  3. PEGINTRON [Suspect]
     Dosage: 1.5 MICROGRAM PER KILOGRAM, QW
     Route: 058
     Dates: start: 20130213, end: 20130321
  4. REBETOL [Suspect]
     Indication: CHRONIC HEPATITIS C
     Dosage: 200 MG, BID
     Route: 048
     Dates: start: 20130130, end: 20130205
  5. REBETOL [Suspect]
     Dosage: 500 MG, QD
     Route: 048
     Dates: start: 20130206, end: 20130226
  6. REBETOL [Suspect]
     Dosage: 400 MG, QD
     Route: 048
     Dates: start: 20130227, end: 20130305
  7. REBETOL [Suspect]
     Dosage: 500 MG, QD
     Route: 048
     Dates: start: 20130306, end: 20130326
  8. REBETOL [Suspect]
     Dosage: 400 MG, QD
     Route: 048
     Dates: start: 20130327, end: 20130329
  9. TELAVIC [Suspect]
     Indication: CHRONIC HEPATITIS C
     Dosage: 750 MG, BID
     Route: 048
     Dates: start: 20130130, end: 20130320
  10. TELAVIC [Suspect]
     Dosage: 1250 MG,QD
     Route: 048
     Dates: start: 20130321, end: 20130329
  11. NEO-MINOPHAGEN C [Concomitant]
     Indication: CHRONIC HEPATITIS C
     Dosage: DAILY DOSE UNKNOWN, TIW
     Route: 042
     Dates: end: 20130329
  12. URSO [Concomitant]
     Indication: CHRONIC HEPATITIS C
     Dosage: 600 MG, QD, FORMULATION- POR
     Route: 048
  13. NORVASC [Concomitant]
     Dosage: 5 MG, QD, FORMULATION- POR
     Route: 048
  14. FLUITRAN [Concomitant]
     Dosage: 1 MG, QD, FORMULATION-POR
     Route: 048
  15. MEVALOTIN [Concomitant]
     Dosage: 5 MG, QD, FORMULATION- POR
     Route: 048
  16. BIO THREE [Concomitant]
     Dosage: UNK, FORMULATION- POR
     Route: 048

REACTIONS (2)
  - Interstitial lung disease [Recovering/Resolving]
  - Haemoglobin decreased [Recovering/Resolving]
